FAERS Safety Report 14752074 (Version 1)
Quarter: 2018Q2

REPORT INFORMATION
  Report Type: Spontaneous
  Country: AT (occurrence: AT)
  Receive Date: 20180412
  Receipt Date: 20180412
  Transmission Date: 20180711
  Serious: Yes (Other)
  Sender: FDA-Public Use
  Company Number: AT-WEST-WARD PHARMACEUTICALS CORP.-AT-H14001-18-02921

PATIENT
  Sex: Male

DRUGS (1)
  1. SEDACORON [Suspect]
     Active Substance: AMIODARONE HYDROCHLORIDE
     Indication: PRODUCT USED FOR UNKNOWN INDICATION
     Route: 065

REACTIONS (2)
  - Age-related macular degeneration [Unknown]
  - Visual impairment [Unknown]
